FAERS Safety Report 7220469-7 (Version None)
Quarter: 2010Q4

REPORT INFORMATION
  Report Type: 
  Country: None (occurrence: None)
  Receive Date: 20101229
  Receipt Date: 20101215
  Transmission Date: 20110411
  Serious: Yes (Hospitalization)
  Sender: FDA-Public Use
  Company Number: WAES 0807USA03410

PATIENT
  Age: 67 Year
  Sex: Male

DRUGS (9)
  1. ZOCOR [Suspect]
     Indication: ACUTE CORONARY SYNDROME
     Dosage: 40 MG/DAILY PO
     Route: 048
     Dates: start: 20070111
  2. PLACEBO [Suspect]
     Indication: ACUTE CORONARY SYNDROME
     Dosage: PO
     Route: 048
     Dates: start: 20070111
  3. LEVOTHYROXINE SODIUM [Concomitant]
  4. PLAVIX [Concomitant]
  5. SEROQUEL [Concomitant]
  6. ASPIRIN [Concomitant]
  7. BISOPROLOL [Concomitant]
  8. RAMIPRIL [Concomitant]
  9. RISPERIDONE [Concomitant]

REACTIONS (7)
  - ABDOMINAL PAIN [None]
  - AGITATION [None]
  - DELUSION [None]
  - DEPRESSED MOOD [None]
  - INSOMNIA [None]
  - PSYCHOTIC DISORDER [None]
  - RESTLESSNESS [None]
